FAERS Safety Report 25346907 (Version 1)
Quarter: 2025Q2

REPORT INFORMATION
  Report Type: Spontaneous
  Country: US (occurrence: None)
  Receive Date: 20250521
  Receipt Date: 20250521
  Transmission Date: 20250717
  Serious: Yes (Hospitalization)
  Sender: FDA-CTU
  Company Number: None

PATIENT
  Age: 66 Year
  Sex: Male
  Weight: 113 kg

DRUGS (4)
  1. ENOXAPARIN [Suspect]
     Active Substance: ENOXAPARIN
     Indication: Embolism venous
     Dosage: 105.00 MG TWICE A DAY ORAL ?
     Route: 048
     Dates: start: 20250423, end: 20250505
  2. ENOXAPARIN [Suspect]
     Active Substance: ENOXAPARIN
     Indication: Antiphospholipid syndrome
  3. ENOXAPARIN [Suspect]
     Active Substance: ENOXAPARIN
     Indication: Disease recurrence
  4. WARFARIN SODIUM [Suspect]
     Active Substance: WARFARIN SODIUM
     Dates: end: 20250505

REACTIONS (3)
  - Hypertensive urgency [None]
  - Haematoma [None]
  - Blood loss anaemia [None]

NARRATIVE: CASE EVENT DATE: 20250505
